FAERS Safety Report 19320912 (Version 1)
Quarter: 2021Q2

REPORT INFORMATION
  Report Type: Spontaneous
  Country: US (occurrence: US)
  Receive Date: 20210528
  Receipt Date: 20210528
  Transmission Date: 20210717
  Serious: Yes (Other)
  Sender: FDA-Public Use
  Company Number: None

PATIENT
  Age: 75 Year
  Sex: Female
  Weight: 63 kg

DRUGS (3)
  1. ESTRADIOL 10 MCG VAGINAL TABS [Suspect]
     Active Substance: ESTRADIOL
     Indication: ATROPHIC VULVOVAGINITIS
     Dosage: ?          QUANTITY:1 TABLET(S);OTHER FREQUENCY:2 TIMES WEEK;?
     Route: 067
  2. CPAP [Concomitant]
     Active Substance: DEVICE
  3. ALIVE MULTIPLE VITAMINS FOR WOMEN 50+ [Concomitant]

REACTIONS (7)
  - Pelvic pain [None]
  - Discomfort [None]
  - Vulval ulceration [None]
  - Fungal infection [None]
  - Pain [None]
  - Therapy cessation [None]
  - Ulcer haemorrhage [None]

NARRATIVE: CASE EVENT DATE: 20210527
